FAERS Safety Report 19009720 (Version 1)
Quarter: 2021Q1

REPORT INFORMATION
  Report Type: Report from Study
  Country: US (occurrence: US)
  Receive Date: 20210315
  Receipt Date: 20210315
  Transmission Date: 20210420
  Serious: Yes (Other)
  Sender: FDA-Public Use
  Company Number: US-SHIRE-US202034014

PATIENT
  Sex: Female

DRUGS (1)
  1. HUMAN IMMUNOGLOBULIN; HYALURONIDASE [Suspect]
     Active Substance: HUMAN IMMUNOGLOBULIN G\HYALURONIDASE RECOMBINANT HUMAN
     Indication: PRIMARY IMMUNODEFICIENCY SYNDROME
     Dosage: 40 GRAM, EVERY 3 WK
     Route: 065

REACTIONS (13)
  - Rhinorrhoea [Unknown]
  - Cystitis [Recovering/Resolving]
  - Myalgia [Unknown]
  - Nephrolithiasis [Unknown]
  - Infection [Recovered/Resolved]
  - Oral herpes [Unknown]
  - Pyrexia [Unknown]
  - Fatigue [Unknown]
  - Arthritis [Unknown]
  - Pain [Unknown]
  - Escherichia infection [Recovering/Resolving]
  - Kidney infection [Recovering/Resolving]
  - Sinusitis [Recovering/Resolving]
